FAERS Safety Report 5443607-5 (Version None)
Quarter: 2007Q3

REPORT INFORMATION
  Report Type: 
  Country: None (occurrence: None)
  Receive Date: 20070730
  Receipt Date: 20070417
  Transmission Date: 20080115
  Serious: Yes (Death, Hospitalization)
  Sender: FDA-Public Use
  Company Number: 236349

PATIENT
  Age: 74 Year
  Sex: Female

DRUGS (9)
  1. RITUXAN [Suspect]
     Indication: WALDENSTROM'S MACROGLOBULINAEMIA
     Dosage: 675 MG, INTRAVENOUS
     Route: 042
     Dates: start: 20060305
  2. FLUDARABINE (FLUDARABINE PHOSPHATE) [Concomitant]
  3. CYTOXAN [Concomitant]
  4. ARMIDEX (ANASTROZOLE) [Concomitant]
  5. NIACIN (NIACIN) [Concomitant]
  6. MULTIVITAMIN [Concomitant]
  7. PRILOSEC [Concomitant]
  8. ZANTAC [Concomitant]
  9. CALCIUM (CALCIUM NOS) [Concomitant]

REACTIONS (1)
  - HEPATITIS B [None]
